FAERS Safety Report 22395489 (Version 1)
Quarter: 2023Q2

REPORT INFORMATION
  Report Type: Spontaneous
  Country: US (occurrence: US)
  Receive Date: 20230601
  Receipt Date: 20230601
  Transmission Date: 20230721
  Serious: Yes (Hospitalization, Other)
  Sender: FDA-Public Use
  Company Number: US-MLMSERVICE-20230522-4297880-1

PATIENT
  Age: 62 Year
  Sex: Male

DRUGS (2)
  1. MESALAMINE [Suspect]
     Active Substance: MESALAMINE
     Indication: Proctitis ulcerative
     Route: 048
  2. MESALAMINE [Suspect]
     Active Substance: MESALAMINE
     Indication: Proctitis ulcerative
     Route: 065

REACTIONS (3)
  - Proctitis ulcerative [Recovering/Resolving]
  - Shock haemorrhagic [Recovering/Resolving]
  - Drug hypersensitivity [Recovering/Resolving]
